FAERS Safety Report 21255931 (Version 1)
Quarter: 2022Q3

REPORT INFORMATION
  Report Type: Report from Study
  Country: CA (occurrence: CA)
  Receive Date: 20220825
  Receipt Date: 20220825
  Transmission Date: 20221026
  Serious: Yes (Other)
  Sender: FDA-Public Use
  Company Number: CA-ABBVIE-22K-028-4514507-00

PATIENT
  Sex: Female

DRUGS (1)
  1. HUMIRA [Suspect]
     Active Substance: ADALIMUMAB
     Indication: Crohn^s disease
     Route: 058
     Dates: start: 20180511

REACTIONS (8)
  - Anaemia [Unknown]
  - Chills [Unknown]
  - Overweight [Unknown]
  - Ankylosing spondylitis [Unknown]
  - Poor quality sleep [Unknown]
  - Pyrexia [Unknown]
  - Pain in extremity [Unknown]
  - Tinea pedis [Unknown]
